FAERS Safety Report 21399732 (Version 1)
Quarter: 2022Q4

REPORT INFORMATION
  Report Type: Spontaneous
  Country: US (occurrence: None)
  Receive Date: 20221001
  Receipt Date: 20221001
  Transmission Date: 20230113
  Serious: No
  Sender: FDA-Public Use
  Company Number: 2022A333526

PATIENT
  Sex: Female

DRUGS (2)
  1. BRILINTA [Suspect]
     Active Substance: TICAGRELOR
     Indication: Stent placement
     Route: 048
     Dates: start: 202207
  2. METOPROLOL SUCCINATE [Suspect]
     Active Substance: METOPROLOL SUCCINATE
     Indication: Heart rate decreased
     Route: 048
     Dates: start: 202207

REACTIONS (13)
  - Headache [Unknown]
  - Epistaxis [Unknown]
  - Back pain [Unknown]
  - Neck pain [Unknown]
  - Onychoclasis [Unknown]
  - Limb injury [Unknown]
  - Increased tendency to bruise [Unknown]
  - Dyspnoea [Unknown]
  - Skin discolouration [Unknown]
  - Chest pain [Unknown]
  - Nail disorder [Unknown]
  - Mass [Unknown]
  - Pain [Unknown]
